FAERS Safety Report 23279121 (Version 1)
Quarter: 2023Q4

REPORT INFORMATION
  Report Type: Spontaneous
  Country: GB (occurrence: GB)
  Receive Date: 20231209
  Receipt Date: 20231209
  Transmission Date: 20240109
  Serious: Yes (Hospitalization, Other)
  Sender: FDA-Public Use
  Company Number: None

PATIENT
  Age: 73 Year
  Sex: Female

DRUGS (12)
  1. FUROSEMIDE [Suspect]
     Active Substance: FUROSEMIDE
     Dosage: (DOSAGE TEXT: 20 MG/2ML SOLUTION FOR INJECTION AMPOULES, DOSAGE FORM: SOLUTION FOR INJECTION) 40 MIL
     Route: 065
  2. LANOLIN\LIGHT MINERAL OIL\PARAFFIN [Concomitant]
     Active Substance: LANOLIN\LIGHT MINERAL OIL\PARAFFIN
     Dosage: (DOSAGE TEXT: APPLY AS NEEDED 500 GRAM)
     Route: 065
  3. VENTOLIN [Concomitant]
     Active Substance: ALBUTEROL SULFATE
     Dosage: (DOSAGE TEXT: 2 PUFFS PRN) 100 MICROGRAMS (UG) AS NECESSARY, ADDITIONAL INFORMATION: INHALER
     Route: 055
  4. POLYETHYLENE GLYCOL 3350\POTASSIUM CHLORIDE\SODIUM BICARBONATE\SODIUM [Concomitant]
     Active Substance: POLYETHYLENE GLYCOL 3350\POTASSIUM CHLORIDE\SODIUM BICARBONATE\SODIUM CHLORIDE
     Indication: Constipation
     Dosage: (DOSAGE TEXT: DISSOLVE CONTENTS OF ONE SACHET IN HALF A GLASS (125 ML) OF WATER AND TAKE THREE TIMES
     Route: 065
  5. MIRTAZAPINE [Concomitant]
     Active Substance: MIRTAZAPINE
     Dosage: (DOSAGE TEXT: AT NIGHT) 15 MILLIGRAMS (MG) ONCE A DAY
     Route: 065
  6. ACETAMINOPHEN [Concomitant]
     Active Substance: ACETAMINOPHEN
     Dosage: (DOSAGE TEXT: 500 MG TABLETS TWO TO BE TAKEN EVERY 4-6 HOURS UP TO FOUR TIMES A DAY, ADDITIONAL INFO
     Route: 065
  7. LEVOTHYROXINE [Concomitant]
     Active Substance: LEVOTHYROXINE
     Dosage: (DOSAGE TEXT: AT LEAST 30 MINUTES BEFORE BREAKFAST, CAFFEINE-CONTAINING DRINKS OR OTHER MEDICATION )
     Route: 065
  8. DOCUSATE [Concomitant]
     Active Substance: DOCUSATE
     Dosage: 100 MILLIGRAMS (MG) TWICE A DAY
     Route: 065
  9. LACTULOSE [Concomitant]
     Active Substance: LACTULOSE
     Dosage: 10 MILLILITERS (ML) TWICE A DAY
     Route: 065
  10. SENNA [Concomitant]
     Active Substance: SENNA LEAF\SENNOSIDES\SENNOSIDES A AND B
     Dosage: (DOSAGE TEXT: AT NIGHT) 15 MILLIGRAMS (MG) ONCE A DAY
     Route: 065
  11. RISPERIDONE [Concomitant]
     Active Substance: RISPERIDONE
     Dosage: (DOSAGE TEXT: 1MG TABLET ONE TABLET AT NIGHT 4 MG TABLETS ONE AT NIGHT)
     Route: 065
  12. VALPROIC ACID [Concomitant]
     Active Substance: VALPROIC ACID
     Dosage: 250 MILLIGRAMS (MG) TWICE A DAY
     Route: 065

REACTIONS (1)
  - Hypokalaemia [Unknown]
